FAERS Safety Report 11059121 (Version 2)
Quarter: 2015Q2

REPORT INFORMATION
  Report Type: Report from Study
  Country: US (occurrence: US)
  Receive Date: 20150423
  Receipt Date: 20150511
  Transmission Date: 20150821
  Serious: Yes (Other)
  Sender: FDA-Public Use
  Company Number: US-BAXTER-2015BAX021182

PATIENT
  Age: 26 Year
  Sex: Female
  Weight: 54.54 kg

DRUGS (2)
  1. GAMMAGARD LIQUID [Suspect]
     Active Substance: HUMAN IMMUNOGLOBULIN G
     Dosage: 2ND INFUSION, IN THE ABDOMEN OVER 1.5 HOURS
     Route: 058
     Dates: start: 201504, end: 201504
  2. GAMMAGARD LIQUID [Suspect]
     Active Substance: HUMAN IMMUNOGLOBULIN G
     Indication: PRIMARY IMMUNODEFICIENCY SYNDROME
     Dosage: 1ST INFUSION, IN THE ABDOMEN OVER 1.5 HOURS
     Route: 058
     Dates: start: 201503, end: 201503

REACTIONS (2)
  - Urinary tract infection [Recovered/Resolved]
  - Infusion site swelling [Recovered/Resolved]

NARRATIVE: CASE EVENT DATE: 201504
